FAERS Safety Report 5542482-8 (Version None)
Quarter: 2007Q4

REPORT INFORMATION
  Report Type: 
  Country: None (occurrence: None)
  Receive Date: 20071210
  Receipt Date: 20071129
  Transmission Date: 20080405
  Serious: Yes (Life-Threatening, Hospitalization)
  Sender: FDA-Public Use
  Company Number: JP-SANOFI-SYNTHELABO-A01200712333

PATIENT
  Age: 30 Year
  Sex: Male

DRUGS (1)
  1. PENTAGIN [Suspect]
     Indication: ANALGESIA
     Dosage: 15 MG
     Route: 030
     Dates: start: 20050101, end: 20050101

REACTIONS (4)
  - COMA [None]
  - DRUG INTERACTION [None]
  - OXYGEN SATURATION DECREASED [None]
  - SHOCK [None]
